FAERS Safety Report 10163186 (Version 1)
Quarter: 2014Q2

REPORT INFORMATION
  Report Type: Spontaneous
  Country: JP (occurrence: JP)
  Receive Date: 20140509
  Receipt Date: 20140509
  Transmission Date: 20141212
  Serious: Yes (Hospitalization)
  Sender: FDA-Public Use
  Company Number: JP-GLAXOSMITHKLINE-B0992229A

PATIENT
  Sex: Male
  Weight: 56 kg

DRUGS (4)
  1. OMEGA-3-ACID ETHYL ESTERS [Suspect]
     Indication: HYPERCHOLESTEROLAEMIA
     Dosage: 2000MG PER DAY
     Route: 048
     Dates: end: 20140416
  2. UNISIA [Concomitant]
  3. ALLOPURINOL [Concomitant]
  4. EZETIMIBE [Concomitant]

REACTIONS (2)
  - Post procedural haemorrhage [Recovered/Resolved]
  - Off label use [Recovered/Resolved]
